FAERS Safety Report 9071374 (Version 1)
Quarter: 2013Q1

REPORT INFORMATION
  Report Type: Spontaneous
  Country: US (occurrence: US)
  Receive Date: 20130129
  Receipt Date: 20130129
  Transmission Date: 20140127
  Serious: No
  Sender: FDA-Public Use
  Company Number: US-B.I. PHARMACEUTICALS,INC./RIDGEFIELD-2013-BI-02287BP

PATIENT
  Age: 73 None
  Sex: Male
  Weight: 74 kg

DRUGS (2)
  1. ZANTAC 150 (RANITIDINE HYDROCHLORIDE) [Suspect]
     Indication: DYSPEPSIA
     Route: 048
     Dates: start: 20130122
  2. ZANTAC 150 (RANITIDINE HYDROCHLORIDE) [Suspect]
     Dosage: 450 MG
     Route: 048
     Dates: start: 20130125, end: 20130125

REACTIONS (1)
  - Incorrect dose administered [Recovered/Resolved]
